FAERS Safety Report 24445234 (Version 2)
Quarter: 2024Q4

REPORT INFORMATION
  Report Type: Spontaneous
  Country: US (occurrence: US)
  Receive Date: 20241016
  Receipt Date: 20241206
  Transmission Date: 20250114
  Serious: Yes (Hospitalization, Other)
  Sender: TEVA
  Company Number: US-TEVA-VS-3248916

PATIENT
  Age: 74 Year
  Sex: Female

DRUGS (1)
  1. AUSTEDO XR [Suspect]
     Active Substance: DEUTETRABENAZINE
     Indication: Product used for unknown indication
     Dosage: 12 MG+ 24 MG
     Route: 048

REACTIONS (4)
  - Hospitalisation [Unknown]
  - Surgery [Unknown]
  - Tremor [Unknown]
  - Pain [Unknown]
